FAERS Safety Report 19504052 (Version 3)
Quarter: 2021Q3

REPORT INFORMATION
  Report Type: Spontaneous
  Country: IN (occurrence: IN)
  Receive Date: 20210707
  Receipt Date: 20210910
  Transmission Date: 20211014
  Serious: Yes (Other)
  Sender: FDA-Public Use
  Company Number: IN-PFIZER INC-2019455031

PATIENT
  Age: 36 Year
  Sex: Female

DRUGS (7)
  1. SHELCAL [CALCIUM CARBONATE;COLECALCIFEROL] [Concomitant]
     Dosage: 500 MG, 1X/DAY
  2. LEVIZA [Concomitant]
     Dosage: 500 MG
  3. LEVIZA [Concomitant]
     Dosage: 250 UNK
  4. PALBACE [Suspect]
     Active Substance: PALBOCICLIB
     Dosage: 100 MG, CYCLIC (OD D 1?D21 7 DAYS OFF)
     Route: 048
  5. PALBACE [Suspect]
     Active Substance: PALBOCICLIB
     Indication: BREAST CANCER METASTATIC
     Dosage: 125 MG, CYCLIC (ONCE A DAY)
     Route: 048
     Dates: start: 20190820
  6. VIT D [COLECALCIFEROL] [Concomitant]
     Dosage: 60000
     Route: 042
  7. FULVESTRANT. [Concomitant]
     Active Substance: FULVESTRANT
     Dosage: 500 MG
     Route: 030
     Dates: start: 20190820

REACTIONS (5)
  - Neutropenia [Recovered/Resolved]
  - Mucosal inflammation [Unknown]
  - Abdominal pain upper [Unknown]
  - Seizure [Unknown]
  - Haemoglobin decreased [Unknown]

NARRATIVE: CASE EVENT DATE: 2019
